FAERS Safety Report 7958134-0 (Version None)
Quarter: 2011Q4

REPORT INFORMATION
  Report Type: 
  Country: None (occurrence: None)
  Receive Date: 20111205
  Receipt Date: 20110916
  Transmission Date: 20120403
  Serious: Yes (Death, Hospitalization)
  Sender: FDA-Public Use
  Company Number: PHHO2011US15813

PATIENT
  Age: 52 Year
  Sex: Female
  Weight: 52 kg

DRUGS (3)
  1. IMATINIB MESYLATE [Suspect]
     Dosage: 200 MG, QD
     Route: 048
     Dates: start: 20110713, end: 20110714
  2. IMATINIB MESYLATE [Suspect]
     Indication: PULMONARY ARTERIAL HYPERTENSION
     Dosage: 400 MG, QD
     Route: 048
     Dates: start: 20110512, end: 20110712
  3. METOLAZONE [Suspect]

REACTIONS (4)
  - DISEASE PROGRESSION [None]
  - CONCOMITANT DISEASE PROGRESSION [None]
  - RENAL FAILURE ACUTE [None]
  - CARDIAC FAILURE [None]
